FAERS Safety Report 6579814-8 (Version None)
Quarter: 2010Q1

REPORT INFORMATION
  Report Type: 
  Country: None (occurrence: None)
  Receive Date: 20100212
  Receipt Date: 20100208
  Transmission Date: 20100710
  Serious: Yes (Other)
  Sender: FDA-Public Use
  Company Number: ES-ROCHE-684405

PATIENT
  Sex: Female
  Weight: 56 kg

DRUGS (3)
  1. BEVACIZUMAB [Suspect]
     Dosage: TEMPORARILY INTERRUPTED
     Route: 042
     Dates: start: 20080123, end: 20100126
  2. TRASTUZUMAB [Suspect]
     Dosage: TEMPORARILY INTERRUPTED.
     Route: 042
     Dates: start: 20080123, end: 20100126
  3. PALIPERIDONE [Concomitant]
     Dosage: REPORTED TDD: 1.
     Dates: start: 20090415

REACTIONS (1)
  - CONVULSION [None]
